FAERS Safety Report 7214066-7 (Version None)
Quarter: 2011Q1

REPORT INFORMATION
  Report Type: 
  Country: None (occurrence: None)
  Receive Date: 20110107
  Receipt Date: 20101229
  Transmission Date: 20110831
  Serious: No
  Sender: FDA-Public Use
  Company Number: US-BIOGENIDEC-2010BI045244

PATIENT
  Age: 48 Year
  Sex: Female

DRUGS (1)
  1. AVONEX [Suspect]
     Indication: MULTIPLE SCLEROSIS
     Route: 030

REACTIONS (5)
  - INJECTION SITE HAEMATOMA [None]
  - GASTROINTESTINAL CANDIDIASIS [None]
  - VULVOVAGINAL CANDIDIASIS [None]
  - VAGINITIS BACTERIAL [None]
  - STOMATITIS [None]
